FAERS Safety Report 16413332 (Version 1)
Quarter: 2019Q2

REPORT INFORMATION
  Report Type: Report from Study
  Country: FR (occurrence: FR)
  Receive Date: 20190611
  Receipt Date: 20190611
  Transmission Date: 20190711
  Serious: Yes (Other)
  Sender: FDA-Public Use
  Company Number: FR-JAZZ-2019-FR-007786

PATIENT

DRUGS (3)
  1. DEFITELIO [Suspect]
     Active Substance: DEFIBROTIDE SODIUM
     Dosage: 24 MG/KG, QD
     Dates: start: 20180630, end: 2018
  2. DEFITELIO [Suspect]
     Active Substance: DEFIBROTIDE SODIUM
     Dosage: 24.4 MG/KG, QD
     Dates: start: 2018, end: 20180817
  3. DEFITELIO [Suspect]
     Active Substance: DEFIBROTIDE SODIUM
     Indication: PROPHYLAXIS
     Dosage: 24.4 MG/KG, QD
     Dates: start: 20180428, end: 20180519

REACTIONS (5)
  - Sepsis [Unknown]
  - Chronic graft versus host disease [Unknown]
  - Off label use [Unknown]
  - Embolism [Unknown]
  - Venoocclusive disease [Recovered/Resolved]

NARRATIVE: CASE EVENT DATE: 20180428
